FAERS Safety Report 12746505 (Version 1)
Quarter: 2016Q3

REPORT INFORMATION
  Report Type: Report from Study
  Country: BR (occurrence: BR)
  Receive Date: 20160915
  Receipt Date: 20160915
  Transmission Date: 20161109
  Serious: Yes (Other)
  Sender: FDA-Public Use
  Company Number: PHHY2016BR126868

PATIENT
  Sex: Female

DRUGS (1)
  1. EXELON PATCH [Suspect]
     Active Substance: RIVASTIGMINE
     Indication: PRODUCT USED FOR UNKNOWN INDICATION
     Dosage: 4.6 MG, QD PATCH 5 (CM2)
     Route: 062

REACTIONS (6)
  - Weight increased [Unknown]
  - Drug prescribing error [Unknown]
  - Wrong technique in product usage process [Unknown]
  - Parkinsonian crisis [Unknown]
  - Drug intolerance [Unknown]
  - Incorrect product storage [Unknown]
